FAERS Safety Report 13693936 (Version 2)
Quarter: 2017Q3

REPORT INFORMATION
  Report Type: Spontaneous
  Country: JP (occurrence: JP)
  Receive Date: 20170627
  Receipt Date: 20170710
  Transmission Date: 20171127
  Serious: Yes (Hospitalization)
  Sender: FDA-Public Use
  Company Number: JP-PFIZER INC-2017276225

PATIENT
  Age: 79 Year
  Sex: Male
  Weight: 47 kg

DRUGS (15)
  1. LYRICA [Suspect]
     Active Substance: PREGABALIN
     Indication: NEURALGIA
     Dosage: 25 MG, 2X/DAY
     Route: 048
     Dates: end: 20170420
  2. AZULENE SULFONATE SODIUM/L-GLUTAMINE [Concomitant]
  3. DIGOXIN. [Concomitant]
     Active Substance: DIGOXIN
  4. ALLOPURINOL. [Concomitant]
     Active Substance: ALLOPURINOL
  5. URIEF [Suspect]
     Active Substance: SILODOSIN
     Indication: BENIGN PROSTATIC HYPERPLASIA
     Dosage: 4 MG, 2X/DAY
     Route: 048
     Dates: end: 20170420
  6. SPIRONOLACTONE. [Concomitant]
     Active Substance: SPIRONOLACTONE
  7. BETANIS [Concomitant]
     Active Substance: MIRABEGRON
  8. ETIZOLAM [Concomitant]
     Active Substance: ETIZOLAM
  9. ALOSENN [Concomitant]
     Active Substance: SENNA LEAF
  10. ANCHUSANRYO [Concomitant]
  11. HERBAL NOS [Concomitant]
     Active Substance: HERBALS
  12. METHYCOBAL [Concomitant]
     Active Substance: METHYLCOBALAMIN
  13. THYRADIN [Concomitant]
     Active Substance: LEVOTHYROXINE
  14. FUROSEMIDE. [Concomitant]
     Active Substance: FUROSEMIDE
  15. TAKECAB [Concomitant]
     Active Substance: VONOPRAZAN FUMURATE

REACTIONS (2)
  - Dizziness [Recovered/Resolved]
  - Loss of control of legs [Recovered/Resolved]

NARRATIVE: CASE EVENT DATE: 20170311
